FAERS Safety Report 7177886-3 (Version None)
Quarter: 2010Q4

REPORT INFORMATION
  Report Type: 
  Country: None (occurrence: None)
  Receive Date: 20101220
  Receipt Date: 20101213
  Transmission Date: 20110411
  Serious: Yes (Congenital Anomaly)
  Sender: FDA-Public Use
  Company Number: NO-ASTRAZENECA-2010SE58862

PATIENT
  Age: 3 Year
  Sex: Male

DRUGS (4)
  1. ENTOCORT EC [Suspect]
     Indication: AUTOIMMUNE HEPATITIS
     Route: 064
  2. PREDNISOLONE [Suspect]
     Indication: AUTOIMMUNE HEPATITIS
     Dosage: 2,5 - 5 MG A DAY
     Route: 064
  3. IMUREL [Suspect]
     Indication: AUTOIMMUNE HEPATITIS
     Route: 064
  4. FOSAMAX [Suspect]
     Indication: OSTEOPOROSIS
     Dosage: THE PATIENT USED PRIOR TO CONCEPTION
     Route: 064

REACTIONS (1)
  - TOOTH HYPOPLASIA [None]
